FAERS Safety Report 6316047-4 (Version None)
Quarter: 2009Q3

REPORT INFORMATION
  Report Type: 
  Country: None (occurrence: None)
  Receive Date: 20090820
  Receipt Date: 20090808
  Transmission Date: 20100115
  Serious: Yes (Hospitalization)
  Sender: FDA-Public Use
  Company Number: US-JNJFOC-20090805753

PATIENT
  Sex: Female
  Weight: 77.2 kg

DRUGS (18)
  1. IBUPROFEN [Suspect]
     Route: 048
  2. IBUPROFEN [Suspect]
     Indication: DRUG USE FOR UNKNOWN INDICATION
     Dosage: 200 MG, FREQUENCY NOT REPORTED, TOTAL 800 MG DAILY
     Route: 048
  3. CLARITIN [Concomitant]
     Route: 048
  4. AMINOSALICYLIC ACID BUFFERED TAB [Concomitant]
     Route: 048
  5. ANTACID LIQUID PLUS SIMETHICONE [Concomitant]
     Route: 048
  6. FAMOTIDINE [Concomitant]
     Route: 048
  7. PROPOXYPHENE HCL CAP [Concomitant]
     Route: 048
  8. TYLENOL (CAPLET) [Concomitant]
     Route: 048
  9. BENADRYL [Concomitant]
     Route: 048
  10. MULTI-VITAMINS [Concomitant]
  11. GLUCOSAMINE CHONDROITIN MSM [Concomitant]
     Route: 048
  12. ALL OTHER NON-THERAPEUTIC PRODUCTS [Concomitant]
  13. CALCIUM WITH VITAMIN D [Concomitant]
     Route: 048
  14. FLAXSEED OIL [Concomitant]
  15. LOVAZA [Concomitant]
  16. TURMERIC [Concomitant]
     Route: 048
  17. L-ARGININE [Concomitant]
     Route: 048
  18. GUAIFENESIN/DEXTROMETHORPHAN [Concomitant]

REACTIONS (1)
  - GASTROINTESTINAL ULCER HAEMORRHAGE [None]
